FAERS Safety Report 23763451 (Version 1)
Quarter: 2024Q2

REPORT INFORMATION
  Report Type: Spontaneous
  Country: DE (occurrence: None)
  Receive Date: 20240419
  Receipt Date: 20240419
  Transmission Date: 20240716
  Serious: Yes (Other)
  Sender: FDA-Public Use
  Company Number: 2024A089526

PATIENT
  Sex: Male

DRUGS (2)
  1. DAPAGLIFLOZIN [Suspect]
     Active Substance: DAPAGLIFLOZIN
     Indication: Cardiac failure
     Route: 048
     Dates: start: 2022
  2. DAPAGLIFLOZIN [Suspect]
     Active Substance: DAPAGLIFLOZIN
     Indication: Renal failure
     Route: 048
     Dates: start: 2022

REACTIONS (5)
  - Renal impairment [Unknown]
  - Residual urine volume increased [Unknown]
  - Coronary artery stenosis [Unknown]
  - IgA nephropathy [Unknown]
  - Hypertension [Unknown]
